FAERS Safety Report 8387756-0 (Version None)
Quarter: 2012Q2

REPORT INFORMATION
  Report Type: 
  Country: None (occurrence: None)
  Receive Date: 20120525
  Receipt Date: 20120515
  Transmission Date: 20120825
  Serious: Yes (Hospitalization)
  Sender: FDA-Public Use
  Company Number: CA-GLAXOSMITHKLINE-A0972951A

PATIENT
  Sex: Female
  Weight: 58.6 kg

DRUGS (3)
  1. CELEXA [Suspect]
     Indication: DEPRESSION
     Dosage: 40MG PER DAY
     Route: 065
     Dates: start: 20060831
  2. RITALIN [Suspect]
     Indication: ATTENTION DEFICIT/HYPERACTIVITY DISORDER
     Dosage: 15MG THREE TIMES PER DAY
     Route: 065
     Dates: start: 20080212
  3. LAMICTAL [Suspect]
     Indication: PROPHYLAXIS
     Route: 048
     Dates: start: 20110601, end: 20120420

REACTIONS (4)
  - PALPITATIONS [None]
  - ARRHYTHMIA [None]
  - DIZZINESS [None]
  - VENTRICULAR EXTRASYSTOLES [None]
